FAERS Safety Report 16245177 (Version 2)
Quarter: 2019Q2

REPORT INFORMATION
  Report Type: Spontaneous
  Country: US (occurrence: US)
  Receive Date: 20190426
  Receipt Date: 20190530
  Transmission Date: 20190711
  Serious: No
  Sender: FDA-Public Use
  Company Number: US-PFIZER INC-2019172903

PATIENT
  Age: 61 Year

DRUGS (1)
  1. CHANTIX [Suspect]
     Active Substance: VARENICLINE TARTRATE
     Indication: SMOKING CESSATION THERAPY
     Dosage: 1 MG, TWICE DAILY (START AFTER VARENICLINE TARTRATE STARTER PACK IS COMPLETED)
     Route: 048

REACTIONS (3)
  - Depression [Unknown]
  - Drug hypersensitivity [Unknown]
  - Nightmare [Unknown]
